FAERS Safety Report 6124102-7 (Version None)
Quarter: 2009Q1

REPORT INFORMATION
  Report Type: 
  Country: None (occurrence: None)
  Receive Date: 20090316
  Receipt Date: 20090102
  Transmission Date: 20090719
  Serious: No
  Sender: FDA-Public Use
  Company Number: DSA_32970_2009

PATIENT
  Sex: Female

DRUGS (3)
  1. XENAZINE [Suspect]
     Indication: HUNTINGTON'S CHOREA
     Dosage: (12.5 MG QD ORAL), (12.5 MG BID ORAL), (12.5 MG QD ORAL)
     Route: 048
     Dates: start: 20081224, end: 20081230
  2. XENAZINE [Suspect]
     Indication: HUNTINGTON'S CHOREA
     Dosage: (12.5 MG QD ORAL), (12.5 MG BID ORAL), (12.5 MG QD ORAL)
     Route: 048
     Dates: start: 20081231, end: 20090101
  3. XENAZINE [Suspect]
     Indication: HUNTINGTON'S CHOREA
     Dosage: (12.5 MG QD ORAL), (12.5 MG BID ORAL), (12.5 MG QD ORAL)
     Route: 048
     Dates: start: 20090101

REACTIONS (5)
  - DYSPHAGIA [None]
  - FEELING ABNORMAL [None]
  - INCREASED APPETITE [None]
  - LISTLESS [None]
  - SOMNOLENCE [None]
